FAERS Safety Report 5020688-4 (Version None)
Quarter: 2006Q2

REPORT INFORMATION
  Report Type: 
  Country: None (occurrence: None)
  Receive Date: 20060602
  Receipt Date: 20060518
  Transmission Date: 20061013
  Serious: Yes (Hospitalization)
  Sender: FDA-Public Use
  Company Number: US200605002801

PATIENT
  Sex: Male

DRUGS (2)
  1. HUMATROPE [Suspect]
     Indication: HYPOPITUITARISM
  2. HUMATROPEN (HUMATROPEN) PEN, REUSABLE [Concomitant]

REACTIONS (1)
  - MENTAL DISORDER [None]
